FAERS Safety Report 23907624 (Version 1)
Quarter: 2024Q2

REPORT INFORMATION
  Report Type: Spontaneous
  Country: TR (occurrence: TR)
  Receive Date: 20240528
  Receipt Date: 20240528
  Transmission Date: 20240715
  Serious: Yes (Hospitalization)
  Sender: FDA-Public Use
  Company Number: TR-STRIDES ARCOLAB LIMITED-2024SP006100

PATIENT
  Age: 17 Year
  Sex: Female

DRUGS (1)
  1. VERAPAMIL [Suspect]
     Active Substance: VERAPAMIL HYDROCHLORIDE
     Indication: Product used for unknown indication
     Dosage: 17 DOSAGE FORM, TABLET (TOTAL DOSE 680MG)
     Route: 048

REACTIONS (6)
  - Suicide attempt [Unknown]
  - Hypotension [Recovered/Resolved]
  - Nausea [Unknown]
  - Acidosis [Unknown]
  - Toxicity to various agents [Unknown]
  - Intentional overdose [Unknown]
